FAERS Safety Report 7672690-1 (Version None)
Quarter: 2011Q3

REPORT INFORMATION
  Report Type: 
  Country: None (occurrence: None)
  Receive Date: 20110809
  Receipt Date: 20110804
  Transmission Date: 20111222
  Serious: Yes (Death, Other)
  Sender: FDA-Public Use
  Company Number: PHHY2011DE70513

PATIENT
  Age: 7 Month
  Sex: Male

DRUGS (5)
  1. FUROSEMIDE [Concomitant]
  2. CAPTOPRIL [Concomitant]
  3. SPIRONOLACTONE [Concomitant]
  4. PROPRANOLOL [Suspect]
     Indication: CARDIAC FAILURE
     Dosage: 0.3 MG/KG, QD
  5. DIGOXIN [Concomitant]

REACTIONS (11)
  - PYREXIA [None]
  - SYSTEMIC INFLAMMATORY RESPONSE SYNDROME [None]
  - HEPATIC FAILURE [None]
  - OXYGEN SATURATION DECREASED [None]
  - ESCHERICHIA TEST POSITIVE [None]
  - PULMONARY OEDEMA [None]
  - PULMONARY HYPERTENSIVE CRISIS [None]
  - LYMPHOHISTIOCYTOSIS [None]
  - GENERAL PHYSICAL HEALTH DETERIORATION [None]
  - BRONCHOSPASM [None]
  - ENDOTOXAEMIA [None]
